FAERS Safety Report 17021973 (Version 3)
Quarter: 2019Q4

REPORT INFORMATION
  Report Type: Spontaneous
  Country: US (occurrence: US)
  Receive Date: 20191112
  Receipt Date: 20191204
  Transmission Date: 20200122
  Serious: Yes (Other)
  Sender: FDA-Public Use
  Company Number: US-ASTRAZENECA-2019SF57712

PATIENT
  Age: 66 Year
  Sex: Male
  Weight: 97.5 kg

DRUGS (10)
  1. LANTUS [Concomitant]
     Active Substance: INSULIN GLARGINE
     Indication: DIABETES MELLITUS
  2. METFORMIN [Concomitant]
     Active Substance: METFORMIN HYDROCHLORIDE
     Indication: DIABETES MELLITUS
  3. HUMARA [Concomitant]
  4. JARDIANCE [Concomitant]
     Active Substance: EMPAGLIFLOZIN
     Indication: DIABETES MELLITUS
  5. BYDUREON BCISE [Suspect]
     Active Substance: EXENATIDE
     Indication: TYPE 2 DIABETES MELLITUS
     Route: 058
     Dates: start: 201910
  6. METFORMIN [Concomitant]
     Active Substance: METFORMIN HYDROCHLORIDE
     Indication: DIABETES MELLITUS
  7. BYDUREON BCISE [Suspect]
     Active Substance: EXENATIDE
     Indication: TYPE 2 DIABETES MELLITUS
     Route: 058
  8. HUMULIN RU 500 [Concomitant]
     Indication: DIABETES MELLITUS
  9. HUMALOG [Concomitant]
     Active Substance: INSULIN LISPRO
     Indication: DIABETES MELLITUS
     Dosage: FOUR TIMES A DAY
  10. JARDIANCE [Concomitant]
     Active Substance: EMPAGLIFLOZIN
     Indication: DIABETES MELLITUS

REACTIONS (7)
  - Visual impairment [Unknown]
  - Renal impairment [Unknown]
  - Weight increased [Unknown]
  - Weight decreased [Unknown]
  - Incorrect dose administered by device [Unknown]
  - Device issue [Unknown]
  - Blood glucose increased [Recovering/Resolving]

NARRATIVE: CASE EVENT DATE: 2018
